FAERS Safety Report 10494517 (Version 1)
Quarter: 2014Q4

REPORT INFORMATION
  Report Type: Spontaneous
  Country: KR (occurrence: None)
  Receive Date: 20141001
  Receipt Date: 20141001
  Transmission Date: 20150528
  Serious: Yes (Hospitalization)
  Sender: FDA-Public Use
  Company Number: 2550805

PATIENT
  Age: 8 Year
  Sex: Male

DRUGS (1)
  1. METHOTREXATE [Suspect]
     Active Substance: METHOTREXATE
     Indication: ACUTE LYMPHOCYTIC LEUKAEMIA

REACTIONS (8)
  - Abdominal pain [None]
  - Acute respiratory distress syndrome [None]
  - Herpes zoster meningoencephalitis [None]
  - Hepatitis acute [None]
  - Disseminated intravascular coagulation [None]
  - Blood pressure increased [None]
  - Varicella zoster pneumonia [None]
  - Hepatosplenomegaly [None]
